FAERS Safety Report 6284454-4 (Version None)
Quarter: 2009Q3

REPORT INFORMATION
  Report Type: 
  Country: None (occurrence: None)
  Receive Date: 20090722
  Receipt Date: 20090707
  Transmission Date: 20100115
  Serious: Yes (Other)
  Sender: FDA-Public Use
  Company Number: A-US2009-26400

PATIENT
  Age: 66 Year
  Sex: Female

DRUGS (2)
  1. TRACLEER [Suspect]
     Indication: DRUG USE FOR UNKNOWN INDICATION
     Dosage: /MG, ORAL
     Route: 048
     Dates: start: 20081001, end: 20081103
  2. TRACLEER [Suspect]
     Indication: DRUG USE FOR UNKNOWN INDICATION
     Dosage: /MG, ORAL
     Route: 048
     Dates: start: 20090204, end: 20090208

REACTIONS (3)
  - ASPARTATE AMINOTRANSFERASE INCREASED [None]
  - CHOLELITHIASIS [None]
  - LIVER FUNCTION TEST ABNORMAL [None]
